FAERS Safety Report 11739937 (Version 1)
Quarter: 2015Q4

REPORT INFORMATION
  Report Type: Spontaneous
  Country: JP (occurrence: JP)
  Receive Date: 20151113
  Receipt Date: 20151113
  Transmission Date: 20160304
  Serious: Yes (Other)
  Sender: FDA-Public Use
  Company Number: JP-009507513-1511JPN004937

PATIENT
  Age: 87 Year
  Sex: Female

DRUGS (6)
  1. BLOOD CELLS, RED [Concomitant]
     Active Substance: HUMAN BLOOD CELLS
     Indication: ANAEMIA
     Dosage: DAILY DOSAGE UNKNOWN
     Route: 042
  2. ESLAX [Suspect]
     Active Substance: ROCURONIUM BROMIDE
     Dosage: DOSE UNKNOWN, RE-ADMINISTERED
     Route: 042
  3. FENTANYL. [Concomitant]
     Active Substance: FENTANYL
     Indication: GENERAL ANAESTHESIA
     Dosage: DAILY DOSAGE UNKNOWN
     Route: 051
  4. PROPOFOL. [Concomitant]
     Active Substance: PROPOFOL
     Indication: GENERAL ANAESTHESIA
     Dosage: DAILY DOSAGE UNKNOWN
     Route: 051
  5. ESLAX [Suspect]
     Active Substance: ROCURONIUM BROMIDE
     Indication: NEUROMUSCULAR BLOCKING THERAPY
     Dosage: 50 MG, ONCE, FIRST DOSE
     Route: 042
  6. BLOOD, PLASMA [Concomitant]
     Indication: COAGULATION TEST ABNORMAL
     Dosage: DAILY DOSAGE UNKNOWN
     Route: 042

REACTIONS (3)
  - Blood pressure decreased [Unknown]
  - Urticaria [Unknown]
  - Generalised erythema [Not Recovered/Not Resolved]
